FAERS Safety Report 10892345 (Version 4)
Quarter: 2015Q2

REPORT INFORMATION
  Report Type: Report from Study
  Country: DE (occurrence: DE)
  Receive Date: 20150306
  Receipt Date: 20150429
  Transmission Date: 20150821
  Serious: Yes (Other)
  Sender: FDA-Public Use
  Company Number: DE-BAYER-2015-034549

PATIENT
  Age: 25 Year
  Sex: Female

DRUGS (4)
  1. YAZ [Suspect]
     Active Substance: DROSPIRENONE\ETHINYL ESTRADIOL
     Indication: CONTRACEPTION
     Dosage: 1 DF, QD
     Route: 048
     Dates: start: 201411
  2. SIOFOR [Suspect]
     Active Substance: METFORMIN HYDROCHLORIDE
     Dosage: UNK
     Route: 048
     Dates: start: 201501
  3. YASMIN [Suspect]
     Active Substance: DROSPIRENONE\ETHINYL ESTRADIOL
     Dosage: 1 DF, QD
     Route: 048
     Dates: start: 201501
  4. QLAIRA FILMTABLETTEN [Suspect]
     Active Substance: DIENOGEST\ESTRADIOL VALERATE
     Indication: CONTRACEPTION
     Dosage: 1 DF, QD
     Route: 048

REACTIONS (17)
  - Abdominal distension [None]
  - Sluggishness [None]
  - Irritability [None]
  - Endometrial hypertrophy [None]
  - Pain [None]
  - Fungal infection [None]
  - Metrorrhagia [None]
  - Food intolerance [None]
  - Negative thoughts [None]
  - Depressive symptom [None]
  - Abnormal weight gain [None]
  - Polymenorrhoea [None]
  - Nausea [None]
  - Depression suicidal [None]
  - Mood altered [None]
  - Polycystic ovaries [None]
  - Disturbance in attention [None]
